FAERS Safety Report 5477633-7 (Version None)
Quarter: 2007Q4

REPORT INFORMATION
  Report Type: 
  Country: None (occurrence: None)
  Receive Date: 20071002
  Receipt Date: 20070920
  Transmission Date: 20080405
  Serious: Yes (Other)
  Sender: FDA-Public Use
  Company Number: 2007JP004445

PATIENT
  Age: 41 Year
  Sex: Male

DRUGS (4)
  1. PROGRAF [Suspect]
     Indication: BONE MARROW TRANSPLANT
     Dosage: 0.03 MG/LG, /D
  2. METHOTREXATE [Concomitant]
  3. PREDNISONE [Concomitant]
  4. MYCOPHENOLATE MOFETIL [Concomitant]

REACTIONS (3)
  - GRAFT VERSUS HOST DISEASE [None]
  - NON-HODGKIN'S LYMPHOMA RECURRENT [None]
  - THROMBOTIC MICROANGIOPATHY [None]
